FAERS Safety Report 19037054 (Version 1)
Quarter: 2021Q1

REPORT INFORMATION
  Report Type: Other
  Country: IT (occurrence: IT)
  Receive Date: 20210322
  Receipt Date: 20210322
  Transmission Date: 20210420
  Serious: Yes (Other)
  Sender: FDA-Public Use
  Company Number: IT-ROCHE-2637805

PATIENT

DRUGS (7)
  1. TOCILIZUMAB. [Suspect]
     Active Substance: TOCILIZUMAB
     Indication: COVID-19 PNEUMONIA
     Route: 058
  2. LOPINAVIR;RITONAVIR [Concomitant]
     Active Substance: LOPINAVIR\RITONAVIR
  3. DARUNAVIR [Concomitant]
     Active Substance: DARUNAVIR
  4. HYDROXYCHLOROQUINE [Concomitant]
     Active Substance: HYDROXYCHLOROQUINE
  5. COBICISTAT [Concomitant]
     Active Substance: COBICISTAT
  6. AZITHROMYCIN ANHYDROUS. [Concomitant]
     Active Substance: AZITHROMYCIN ANHYDROUS
  7. TOCILIZUMAB. [Suspect]
     Active Substance: TOCILIZUMAB
     Indication: COVID-19 PNEUMONIA
     Route: 042

REACTIONS (12)
  - Injection site reaction [Unknown]
  - Aspergillus infection [Unknown]
  - Urinary tract infection [Unknown]
  - Herpes simplex reactivation [Unknown]
  - Off label use [Unknown]
  - Systemic candida [Unknown]
  - Neutropenia [Unknown]
  - Pneumonia bacterial [Unknown]
  - Pneumocystis jirovecii pneumonia [Unknown]
  - Hepatitis B reactivation [Unknown]
  - Sepsis [Unknown]
  - Aspartate aminotransferase increased [Unknown]
